FAERS Safety Report 7573715-4 (Version None)
Quarter: 2011Q2

REPORT INFORMATION
  Report Type: 
  Country: None (occurrence: None)
  Receive Date: 20110627
  Receipt Date: 20110613
  Transmission Date: 20111010
  Serious: Yes (Hospitalization)
  Sender: FDA-Public Use
  Company Number: FR-ROCHE-782289

PATIENT
  Sex: Male

DRUGS (18)
  1. AVASTIN [Suspect]
     Dosage: SOLUTION FOR INFUSION; DOSE: 25 MG/ML, 15 MG/KG
     Route: 042
     Dates: start: 20101110
  2. NEULASTA [Suspect]
     Route: 042
     Dates: start: 20101110, end: 20101113
  3. ALIMTA [Suspect]
     Dosage: DAILY DOSE: 1000 MG QD
     Route: 042
     Dates: start: 20100907
  4. ALIMTA [Suspect]
     Dosage: DAILY DOSE: 1000 MG QD
     Route: 042
     Dates: start: 20101021
  5. NEXIUM [Concomitant]
     Dosage: 01479302
  6. AVASTIN [Suspect]
     Dosage: SOLUTION FOR INFUSION; DOSE: 25 MG/ML, 15 MG/KG
     Route: 042
     Dates: start: 20100907
  7. CISPLATIN [Suspect]
     Dosage: DAILY DOSE: 150 MG QD
     Route: 042
     Dates: start: 20100907
  8. PREDNISONE [Concomitant]
  9. CRESTOR [Concomitant]
  10. DICETEL [Concomitant]
  11. NEULASTA [Suspect]
     Route: 042
     Dates: start: 20101021
  12. CLASTOBAN [Concomitant]
  13. PLAVIX [Concomitant]
     Dosage: 01220701
  14. ALIMTA [Suspect]
     Dosage: DAILY DOSE: 1000 MG QD
     Route: 042
     Dates: start: 20101110, end: 20101110
  15. AVASTIN [Suspect]
     Dosage: SOLUTION FOR INFUSION; DOSE: 25 MG/ML, 15 MG/KG
     Route: 042
     Dates: start: 20101021
  16. NEULASTA [Suspect]
     Indication: CHEMOTHERAPY
     Route: 042
     Dates: start: 20100907
  17. CISPLATIN [Suspect]
     Dosage: DAILY DOSE: 150 MG QD
     Route: 042
     Dates: start: 20101021
  18. CISPLATIN [Suspect]
     Dosage: DAILY DOSE: 150 MG QD
     Route: 042
     Dates: start: 20101110, end: 20101110

REACTIONS (1)
  - PNEUMOTHORAX [None]
